FAERS Safety Report 15015099 (Version 4)
Quarter: 2018Q3

REPORT INFORMATION
  Report Type: Report from Study
  Country: NL (occurrence: NL)
  Receive Date: 20180615
  Receipt Date: 20180830
  Transmission Date: 20181010
  Serious: Yes (Death, Other)
  Sender: FDA-Public Use
  Company Number: NL-ASTELLAS-2018US026807

PATIENT
  Age: 71 Year
  Sex: Male

DRUGS (3)
  1. TACROLIMUS. [Suspect]
     Active Substance: TACROLIMUS
     Indication: RENAL TRANSPLANT
     Route: 048
     Dates: start: 20170302
  2. MYFORTIC [Concomitant]
     Active Substance: MYCOPHENOLATE SODIUM
     Indication: IMMUNOSUPPRESSION
     Dosage: 720 (UNKNOWN UNIT), ONCE DAILY
     Route: 065
     Dates: start: 20120622
  3. PREDNISON [Concomitant]
     Active Substance: PREDNISONE
     Indication: IMMUNOSUPPRESSION
     Dosage: 5 (UNKNOWN DOSE), ONCE DAILY
     Route: 065
     Dates: start: 20150918

REACTIONS (8)
  - Blood alkaline phosphatase increased [Not Recovered/Not Resolved]
  - Confusional state [Recovered/Resolved]
  - Hypertension [Not Recovered/Not Resolved]
  - Adenocarcinoma [Fatal]
  - Confusional state [Recovered/Resolved]
  - Pyrexia [Recovered/Resolved]
  - Pyrexia [Recovered/Resolved]
  - Renal graft infection [Not Recovered/Not Resolved]

NARRATIVE: CASE EVENT DATE: 20171120
